FAERS Safety Report 12826931 (Version 1)
Quarter: 2016Q4

REPORT INFORMATION
  Report Type: Spontaneous
  Country: US (occurrence: US)
  Receive Date: 20161006
  Receipt Date: 20161006
  Transmission Date: 20170207
  Serious: Yes (Hospitalization, Other)
  Sender: FDA-Public Use
  Company Number: PHEH2016US025098

PATIENT
  Sex: Male

DRUGS (1)
  1. GLEEVEC [Suspect]
     Active Substance: IMATINIB MESYLATE
     Indication: GASTROINTESTINAL STROMAL TUMOUR
     Dosage: 400 MG, QD
     Route: 048
     Dates: start: 20160216

REACTIONS (5)
  - Jaundice cholestatic [Unknown]
  - Hepatic haemorrhage [Unknown]
  - Therapy non-responder [Unknown]
  - Coagulopathy [Unknown]
  - Abdominal pain [Unknown]
